FAERS Safety Report 8972032 (Version 1)
Quarter: 2012Q4

REPORT INFORMATION
  Report Type: 
  Country: NL (occurrence: NL)
  Receive Date: 20121218
  Receipt Date: 20121218
  Transmission Date: 20130627
  Serious: Yes (Hospitalization)
  Sender: FDA-Public Use
  Company Number: PHHY2012NL107669

PATIENT
  Age: 51 Year
  Sex: Female
  Weight: 74 kg

DRUGS (10)
  1. CITALOPRAM SANDOZ [Suspect]
     Indication: DEPRESSION
     Dosage: 30 mg, QD
     Route: 048
     Dates: start: 20110205
  2. PROVERA [Concomitant]
     Dosage: 3 DF, UNK
     Dates: start: 20120808
  3. METFORMINE [Concomitant]
     Dates: start: 20120808
  4. CARBASALAATCALCIUM CARDIO [Concomitant]
     Dates: start: 20120808
  5. PERSANTIN [Concomitant]
     Dates: start: 20120808
  6. PERINDOPRIL [Concomitant]
     Dates: start: 20120808
  7. CITALOPRAM [Concomitant]
     Dates: start: 20120808
  8. OXAZEPAM [Concomitant]
     Dates: start: 20120808
  9. ZOPICLON [Concomitant]
     Dates: start: 20120808
  10. PANTOPRAZOL [Concomitant]
     Dates: start: 20120808

REACTIONS (2)
  - Cerebrovascular accident [Recovered/Resolved with Sequelae]
  - Angiopathy [Recovered/Resolved with Sequelae]
